FAERS Safety Report 5000322-X (Version None)
Quarter: 2006Q2

REPORT INFORMATION
  Report Type: 
  Country: None (occurrence: None)
  Receive Date: 20060511
  Receipt Date: 20060501
  Transmission Date: 20061013
  Serious: Yes (Hospitalization)
  Sender: FDA-Public Use
  Company Number: US-MERCK-0605USA01812

PATIENT
  Sex: Male
  Weight: 91 kg

DRUGS (7)
  1. VIOXX [Suspect]
     Indication: SPONDYLITIS
     Route: 048
     Dates: start: 20040817, end: 20041021
  2. NORVASC [Concomitant]
     Route: 065
  3. LIPITOR [Concomitant]
     Route: 065
  4. MONOPRIL [Concomitant]
     Route: 065
  5. METOPROLOL [Concomitant]
     Route: 065
  6. WARFARIN [Concomitant]
     Route: 065
  7. VIOXX [Suspect]
     Route: 048
     Dates: start: 20040817, end: 20041021

REACTIONS (3)
  - ARTERIAL RUPTURE [None]
  - DEMENTIA ALZHEIMER'S TYPE [None]
  - GASTRIC ULCER [None]
